FAERS Safety Report 5448448-0 (Version None)
Quarter: 2007Q3

REPORT INFORMATION
  Report Type: 
  Country: None (occurrence: None)
  Receive Date: 20070911
  Receipt Date: 20070827
  Transmission Date: 20080115
  Serious: Yes (Hospitalization, Other)
  Sender: FDA-Public Use
  Company Number: US-ELI_LILLY_AND_COMPANY-US200708005840

PATIENT
  Age: 72 Year
  Sex: Female

DRUGS (7)
  1. EVISTA [Suspect]
     Dosage: 60 MG, UNK
     Route: 048
     Dates: start: 20060914
  2. SYNTHROID [Concomitant]
  3. VERAPAMIL [Concomitant]
  4. COZAAR [Concomitant]
  5. ASPIRIN [Concomitant]
  6. LUTEIN [Concomitant]
  7. VITAMINS [Concomitant]

REACTIONS (3)
  - BREAST CANCER [None]
  - UTERINE CANCER [None]
  - VAGINAL HAEMORRHAGE [None]
